FAERS Safety Report 17516256 (Version 1)
Quarter: 2020Q1

REPORT INFORMATION
  Report Type: Spontaneous
  Country: US (occurrence: US)
  Receive Date: 20200306
  Receipt Date: 20200306
  Transmission Date: 20200409
  Serious: Yes (Other)
  Sender: FDA-Public Use
  Company Number: None

PATIENT
  Age: 60 Year
  Sex: Male
  Weight: 76.5 kg

DRUGS (12)
  1. VALSARTEN [Concomitant]
     Active Substance: VALSARTAN
  2. METHIAMAZOLE [Concomitant]
  3. MELOXICAM. [Concomitant]
     Active Substance: MELOXICAM
  4. VITAMIN [Concomitant]
     Active Substance: VITAMINS
  5. NUGENICS [Concomitant]
  6. METOPROLOL. [Concomitant]
     Active Substance: METOPROLOL
  7. SMYBICORT [Concomitant]
  8. DULOXETINE. [Concomitant]
     Active Substance: DULOXETINE
  9. VIVITROL [Suspect]
     Active Substance: NALTREXONE
     Indication: ALCOHOLISM
  10. TURMERIC [Concomitant]
     Active Substance: HERBALS\TURMERIC
  11. VENTOLIN [Concomitant]
     Active Substance: ALBUTEROL SULFATE
  12. ESOMEPRAZOLE. [Concomitant]
     Active Substance: ESOMEPRAZOLE MAGNESIUM

REACTIONS (3)
  - Nausea [None]
  - Fatigue [None]
  - Dizziness [None]

NARRATIVE: CASE EVENT DATE: 20200305
